FAERS Safety Report 10210476 (Version 1)
Quarter: 2014Q2

REPORT INFORMATION
  Report Type: Spontaneous
  Country: EE (occurrence: EE)
  Receive Date: 20140602
  Receipt Date: 20140602
  Transmission Date: 20141212
  Serious: Yes (Death, Hospitalization)
  Sender: FDA-Public Use
  Company Number: EE-B.I. PHARMACEUTICALS,INC./RIDGEFIELD-2014-BI-24406EA

PATIENT
  Age: 72 Year
  Sex: Male

DRUGS (6)
  1. PRADAXA [Suspect]
     Indication: ATRIAL FIBRILLATION
     Dosage: 220 MG
     Route: 048
     Dates: start: 20140428
  2. DIGOXIN [Concomitant]
     Indication: CARDIAC FAILURE
     Dosage: 0.25 MG
     Route: 048
  3. SPIRIX [Concomitant]
     Indication: CARDIAC FAILURE
     Dosage: 50 MG
     Route: 048
  4. FUROSEMID [Concomitant]
     Indication: CARDIAC FAILURE
     Dosage: 50 MG
     Route: 048
  5. MEFORMIN [Concomitant]
     Indication: TYPE 2 DIABETES MELLITUS
     Dosage: 1000 MG
     Route: 048
  6. OMEPRAZOL [Concomitant]
     Indication: DUODENAL ULCER
     Dosage: 20 MG
     Route: 048

REACTIONS (1)
  - Gastrointestinal haemorrhage [Fatal]
